FAERS Safety Report 6621564-3 (Version None)
Quarter: 2010Q1

REPORT INFORMATION
  Report Type: 
  Country: None (occurrence: None)
  Receive Date: 20100309
  Receipt Date: 20100301
  Transmission Date: 20100710
  Serious: Yes (Other)
  Sender: FDA-Public Use
  Company Number: PH-ABBOTT-10P-128-0629359-00

PATIENT

DRUGS (1)
  1. SEVORANE [Suspect]
     Indication: GENERAL ANAESTHESIA
     Route: 055
     Dates: start: 20100301, end: 20100301

REACTIONS (2)
  - THERAPEUTIC RESPONSE DECREASED [None]
  - UNWANTED AWARENESS DURING ANAESTHESIA [None]
